FAERS Safety Report 14760585 (Version 1)
Quarter: 2018Q2

REPORT INFORMATION
  Report Type: Spontaneous
  Country: ES (occurrence: ES)
  Receive Date: 20180414
  Receipt Date: 20180414
  Transmission Date: 20180711
  Serious: Yes (Life-Threatening, Hospitalization, Other)
  Sender: FDA-Public Use
  Company Number: ES-MACLEODS PHARMACEUTICALS US LTD-MAC2018012512

PATIENT

DRUGS (1)
  1. SILDENAFIL. [Suspect]
     Active Substance: SILDENAFIL
     Indication: PRODUCT USED FOR UNKNOWN INDICATION
     Dosage: 100 MG, MEDICATION ERROR
     Route: 065

REACTIONS (15)
  - Respiratory distress [Recovered/Resolved]
  - Spinal cord infarction [Recovered/Resolved]
  - Monoparesis [Recovered/Resolved]
  - Prescription drug used without a prescription [Recovering/Resolving]
  - Cerebral ischaemia [Recovered/Resolved]
  - Spinal cord disorder [Recovered/Resolved]
  - Hyperreflexia [Recovered/Resolved]
  - Neck pain [Recovered/Resolved]
  - Asthenia [Recovered/Resolved]
  - Bradycardia [Recovered/Resolved]
  - Thermohypoaesthesia [Recovered/Resolved]
  - Cardiac arrest [Recovered/Resolved]
  - Hemiparesis [Recovered/Resolved]
  - Quadriplegia [Recovered/Resolved]
  - Areflexia [Recovered/Resolved]
